FAERS Safety Report 9256301 (Version 1)
Quarter: 2013Q2

REPORT INFORMATION
  Report Type: Spontaneous
  Country: US (occurrence: US)
  Receive Date: 20130425
  Receipt Date: 20130425
  Transmission Date: 20140414
  Serious: No
  Sender: FDA-Public Use
  Company Number: US-AMGEN-USASP2012072232

PATIENT
  Age: 57 Year
  Sex: Male
  Weight: 118.1 kg

DRUGS (4)
  1. NPLATE [Suspect]
     Indication: IDIOPATHIC THROMBOCYTOPENIC PURPURA
     Dosage: 500 MUG, QMO
  2. NADOLOL [Concomitant]
     Dosage: 20 MG, QD
  3. FOLIC ACID [Concomitant]
     Dosage: 20 MG, QD
  4. FUROSEMIDE [Concomitant]
     Dosage: 40 MG, BID

REACTIONS (4)
  - Platelet count increased [Unknown]
  - Palpitations [Unknown]
  - Head discomfort [Unknown]
  - Feeling abnormal [Unknown]
